FAERS Safety Report 10955331 (Version 11)
Quarter: 2020Q2

REPORT INFORMATION
  Report Type: Report from Study
  Country: CA (occurrence: CA)
  Receive Date: 20150326
  Receipt Date: 20200618
  Transmission Date: 20200713
  Serious: Yes (Other)
  Sender: FDA-Public Use
  Company Number: CA-ROCHE-1553566

PATIENT
  Age: 32 Year
  Sex: Male
  Weight: 104 kg

DRUGS (15)
  1. RITUXAN [Suspect]
     Active Substance: RITUXIMAB
     Dosage: FREQUENCY: DAY 1, 15 ; 1ST RPAP DOSE
     Route: 042
     Dates: start: 20150421
  2. RITUXAN HYCELA [Suspect]
     Active Substance: HYALURONIDASE (HUMAN RECOMBINANT)\RITUXIMAB
     Indication: NEUROMYELITIS OPTICA SPECTRUM DISORDER
     Dosage: DAY 1, 15
     Route: 065
  3. CARBAMAZEPINE. [Concomitant]
     Active Substance: CARBAMAZEPINE
  4. MARIJUANA [Concomitant]
     Active Substance: CANNABIS SATIVA SUBSP. INDICA TOP
     Route: 048
  5. MILK THISTLE [SILYBUM MARIANUM] [Concomitant]
     Active Substance: DIETARY SUPPLEMENT\HERBALS\MILK THISTLE
  6. RITUXAN [Suspect]
     Active Substance: RITUXIMAB
     Indication: NEUROMYELITIS OPTICA SPECTRUM DISORDER
     Route: 042
     Dates: start: 20140901, end: 20140930
  7. PREDNISONE. [Concomitant]
     Active Substance: PREDNISONE
     Route: 065
  8. METHYLPREDNISOLONE. [Concomitant]
     Active Substance: METHYLPREDNISOLONE
     Indication: PREMEDICATION
     Route: 042
     Dates: start: 20150421, end: 20160726
  9. TIZANIDINE. [Concomitant]
     Active Substance: TIZANIDINE
  10. METHYLPREDNISOLONE. [Concomitant]
     Active Substance: METHYLPREDNISOLONE
     Route: 042
  11. TURMERIC [CURCUMA LONGA] [Concomitant]
     Active Substance: HERBALS\TURMERIC
  12. CELLCEPT [Suspect]
     Active Substance: MYCOPHENOLATE MOFETIL\MYCOPHENOLATE MOFETIL HYDROCHLORIDE
     Indication: NEUROMYELITIS OPTICA SPECTRUM DISORDER
     Route: 065
     Dates: start: 20131001, end: 20140801
  13. IMURAN [Suspect]
     Active Substance: AZATHIOPRINE
     Indication: PRODUCT USED FOR UNKNOWN INDICATION
     Route: 065
  14. CIPRALEX [Concomitant]
     Active Substance: ESCITALOPRAM OXALATE
     Route: 065
  15. CURCUMIN [Concomitant]
     Active Substance: CURCUMIN
     Route: 065

REACTIONS (32)
  - Fatigue [Unknown]
  - Malaise [Unknown]
  - Neuromyelitis optica spectrum disorder [Unknown]
  - Anal incontinence [Unknown]
  - Lower respiratory tract infection [Not Recovered/Not Resolved]
  - Blood pressure fluctuation [Unknown]
  - Ear pruritus [Recovered/Resolved]
  - Intentional product use issue [Unknown]
  - Hypertonic bladder [Unknown]
  - Off label use [Unknown]
  - Infusion related reaction [Unknown]
  - Flushing [Recovered/Resolved]
  - Headache [Unknown]
  - Blood pressure systolic increased [Unknown]
  - Infection [Unknown]
  - Intervertebral disc protrusion [Recovered/Resolved]
  - Neuromyelitis optica spectrum disorder [Unknown]
  - Treatment failure [Unknown]
  - Chills [Recovered/Resolved]
  - Ligament sprain [Unknown]
  - Infusion related reaction [Not Recovered/Not Resolved]
  - Nasopharyngitis [Unknown]
  - Visual impairment [Unknown]
  - Mobility decreased [Unknown]
  - Vertigo [Unknown]
  - Anxiety [Not Recovered/Not Resolved]
  - Influenza like illness [Unknown]
  - Drug ineffective [Unknown]
  - Cough [Unknown]
  - Infusion related reaction [Recovered/Resolved]
  - Heart rate decreased [Unknown]
  - Heart rate decreased [Unknown]

NARRATIVE: CASE EVENT DATE: 2014
